FAERS Safety Report 11138311 (Version 1)
Quarter: 2015Q2

REPORT INFORMATION
  Report Type: Report from Study
  Country: US (occurrence: US)
  Receive Date: 20150526
  Receipt Date: 20150526
  Transmission Date: 20150821
  Serious: Yes (Hospitalization)
  Sender: FDA-Public Use
  Company Number: US-SA-2015SA051761

PATIENT
  Age: 70 Year
  Sex: Female

DRUGS (1)
  1. AUBAGIO [Suspect]
     Active Substance: TERIFLUNOMIDE
     Indication: MULTIPLE SCLEROSIS
     Route: 048
     Dates: start: 20150404, end: 20150501

REACTIONS (13)
  - Gait disturbance [Unknown]
  - Feeding disorder [Unknown]
  - Nausea [Unknown]
  - Diplopia [Unknown]
  - Pain in extremity [Unknown]
  - Dizziness [Unknown]
  - Weight decreased [Unknown]
  - Loss of consciousness [Unknown]
  - Dehydration [Unknown]
  - Headache [Unknown]
  - Unevaluable event [Unknown]
  - Vomiting [Unknown]
  - Abdominal pain upper [Unknown]

NARRATIVE: CASE EVENT DATE: 2015
